FAERS Safety Report 8125451-3 (Version None)
Quarter: 2012Q1

REPORT INFORMATION
  Report Type: 
  Country: None (occurrence: None)
  Receive Date: 20120209
  Receipt Date: 20120125
  Transmission Date: 20120608
  Serious: Yes (Other)
  Sender: FDA-Public Use
  Company Number: US-WATSON-2012-01878

PATIENT
  Age: 20 Year
  Sex: Female

DRUGS (3)
  1. PREDNISONE TAB [Suspect]
     Indication: AUTOIMMUNE HEPATITIS
  2. MYCOPHENOLATE MEFETIL [Suspect]
     Indication: AUTOIMMUNE HEPATITIS
  3. PROPRANOLOL [Suspect]
     Indication: AUTOIMMUNE HEPATITIS

REACTIONS (3)
  - THROMBOCYTOPENIA [None]
  - CONDITION AGGRAVATED [None]
  - SPLENOMEGALY [None]
